FAERS Safety Report 9992687 (Version 6)
Quarter: 2014Q2

REPORT INFORMATION
  Report Type: Spontaneous
  Country: US (occurrence: US)
  Receive Date: 20140310
  Receipt Date: 20140604
  Transmission Date: 20141212
  Serious: Yes (Other)
  Sender: FDA-Public Use
  Company Number: US-PFIZER INC-2014068189

PATIENT
  Age: 65 Year
  Sex: Female
  Weight: 82.09 kg

DRUGS (2)
  1. LYRICA [Suspect]
     Indication: NEURALGIA
     Dosage: 75 MG, 3X/DAY
     Dates: start: 2013
  2. CELEBREX [Suspect]
     Indication: ARTHRITIS
     Dosage: 200 MG, DAILY
     Dates: start: 2013

REACTIONS (14)
  - Drug withdrawal syndrome [Unknown]
  - Aphagia [Unknown]
  - Asthenia [Unknown]
  - Pain [Unknown]
  - Feeling hot [Unknown]
  - Feeling cold [Unknown]
  - Feeling abnormal [Unknown]
  - Gait disturbance [Unknown]
  - Fatigue [Unknown]
  - Decreased appetite [Unknown]
  - Burning sensation [Unknown]
  - Paraesthesia [Unknown]
  - Malaise [Unknown]
  - Nasopharyngitis [Unknown]
